FAERS Safety Report 12561443 (Version 5)
Quarter: 2016Q4

REPORT INFORMATION
  Report Type: Report from Study
  Country: US (occurrence: US)
  Receive Date: 20160715
  Receipt Date: 20161017
  Transmission Date: 20170207
  Serious: Yes (Hospitalization, Other)
  Sender: FDA-Public Use
  Company Number: US-009507513-1607USA006310

PATIENT
  Age: 82 Year
  Sex: Female
  Weight: 48.9 kg

DRUGS (10)
  1. TEMAZEPAM. [Concomitant]
     Active Substance: TEMAZEPAM
     Indication: INSOMNIA
     Dosage: 15 MG, QD
     Route: 048
     Dates: start: 201601
  2. CALCIUM (UNSPECIFIED) [Concomitant]
     Active Substance: CALCIUM
     Indication: ROUTINE HEALTH MAINTENANCE
     Dosage: 500 MG, QD
     Route: 048
     Dates: start: 201601
  3. ASCORBIC ACID. [Concomitant]
     Active Substance: ASCORBIC ACID
     Indication: ROUTINE HEALTH MAINTENANCE
     Dosage: UNK UNK, QD
     Route: 048
     Dates: start: 201601
  4. TYLENOL [Concomitant]
     Active Substance: ACETAMINOPHEN
     Indication: BACK PAIN
     Dosage: 325 MG, PRN
     Route: 048
     Dates: start: 20100713
  5. KONSYL ORIGINAL FORMULA PSYLLIUM FIBER [Concomitant]
     Active Substance: PSYLLIUM HUSK
     Indication: ROUTINE HEALTH MAINTENANCE
     Dosage: UNK, QD
     Route: 048
     Dates: start: 201601
  6. GARLIC. [Concomitant]
     Active Substance: GARLIC
     Indication: ROUTINE HEALTH MAINTENANCE
     Dosage: UNK, QD
     Route: 048
     Dates: start: 201601
  7. TURMERIC [Concomitant]
     Active Substance: TURMERIC
     Indication: ROUTINE HEALTH MAINTENANCE
     Dosage: 500 MG, QD
     Route: 048
     Dates: start: 201601
  8. KEYTRUDA [Suspect]
     Active Substance: PEMBROLIZUMAB
     Indication: SMALL CELL LUNG CANCER
     Dosage: 200 MG, Q3W(EVERY 3 WEEKS)
     Route: 042
     Dates: start: 20160630, end: 20160725
  9. CHOLECALCIFEROL [Concomitant]
     Active Substance: CHOLECALCIFEROL
     Indication: ROUTINE HEALTH MAINTENANCE
     Dosage: UNK, QD
     Route: 048
     Dates: start: 201601
  10. KEYTRUDA [Suspect]
     Active Substance: PEMBROLIZUMAB
     Dosage: 200 MG, Q3W
     Route: 042
     Dates: start: 20160808

REACTIONS (2)
  - Dehydration [Recovered/Resolved]
  - Pneumonia [Recovered/Resolved]

NARRATIVE: CASE EVENT DATE: 20160712
